FAERS Safety Report 13822366 (Version 4)
Quarter: 2017Q4

REPORT INFORMATION
  Report Type: Report from Study
  Country: US (occurrence: US)
  Receive Date: 20170801
  Receipt Date: 20171023
  Transmission Date: 20180320
  Serious: Yes (Hospitalization, Disabling)
  Sender: FDA-Public Use
  Company Number: PHEH2017US023607

PATIENT
  Sex: Female

DRUGS (6)
  1. ONDANSETRON [Concomitant]
     Active Substance: ONDANSETRON
     Indication: PRODUCT USED FOR UNKNOWN INDICATION
     Dosage: 8 MG, UNK
     Route: 065
  2. TELOTRISTAT ETHYL [Suspect]
     Active Substance: TELOTRISTAT ETHYL
     Indication: CARCINOID SYNDROME
     Dosage: 250 MG, UNK
     Route: 048
     Dates: start: 20170615, end: 20170915
  3. LORAZEPAM. [Concomitant]
     Active Substance: LORAZEPAM
     Indication: PRODUCT USED FOR UNKNOWN INDICATION
     Route: 065
  4. AFINITOR [Suspect]
     Active Substance: EVEROLIMUS
     Indication: CARCINOID SYNDROME
     Dosage: 5 MG, BID (INSTEAD OF QD)
     Route: 048
     Dates: start: 20170615, end: 20170915
  5. MULTI VITAMIN [Concomitant]
     Active Substance: VITAMINS
     Indication: PRODUCT USED FOR UNKNOWN INDICATION
     Route: 065
  6. ATORVASTATIN [Concomitant]
     Active Substance: ATORVASTATIN
     Indication: PRODUCT USED FOR UNKNOWN INDICATION
     Dosage: 20 MG, UNK
     Route: 065

REACTIONS (13)
  - Pruritus [Unknown]
  - Arthralgia [Unknown]
  - Rash maculo-papular [Recovering/Resolving]
  - Dyspnoea [Unknown]
  - Malaise [Unknown]
  - Nausea [Unknown]
  - Muscle strain [Unknown]
  - Hypersensitivity [Unknown]
  - Speech disorder [Unknown]
  - Blood potassium increased [Unknown]
  - Pain [Unknown]
  - Tremor [Unknown]
  - Drug prescribing error [Unknown]
